FAERS Safety Report 26009288 (Version 1)
Quarter: 2025Q4

REPORT INFORMATION
  Report Type: Spontaneous
  Country: TW (occurrence: TW)
  Receive Date: 20251107
  Receipt Date: 20251107
  Transmission Date: 20260118
  Serious: Yes (Hospitalization, Other)
  Sender: NOVARTIS
  Company Number: TW-002147023-NVSC2025TW168859

PATIENT
  Age: 69 Year
  Sex: Male
  Weight: 75.8 kg

DRUGS (15)
  1. DIOVAN [Suspect]
     Active Substance: VALSARTAN
     Indication: Hypertension
     Dosage: 40 MG, QD (0.5TAB)
     Route: 048
     Dates: start: 20250819, end: 20250820
  2. DIOVAN [Suspect]
     Active Substance: VALSARTAN
     Indication: Coronary artery disease
  3. DIOVAN [Suspect]
     Active Substance: VALSARTAN
     Indication: Cardiac failure congestive
  4. CELEBREX [Suspect]
     Active Substance: CELECOXIB
     Indication: Gout
     Dosage: 200 MG, QD
     Route: 048
     Dates: start: 20250807, end: 20250811
  5. CELEBREX [Suspect]
     Active Substance: CELECOXIB
     Dosage: 200 MG, QD
     Route: 048
     Dates: start: 20250813, end: 20250817
  6. LIPITOR [Concomitant]
     Active Substance: ATORVASTATIN CALCIUM
     Indication: Dyslipidaemia
     Dosage: 21.7 MG, QD (1 CAP)
     Route: 048
     Dates: start: 20250729, end: 20250729
  7. DAPAGLIFLOZIN [Concomitant]
     Active Substance: DAPAGLIFLOZIN
     Indication: Diabetes mellitus
     Dosage: 12.3 MG, QD (1 TAB)
     Route: 048
     Dates: start: 20250729, end: 20250804
  8. AMOXICILLIN\CLAVULANATE POTASSIUM [Concomitant]
     Active Substance: AMOXICILLIN\CLAVULANATE POTASSIUM
     Indication: Infection
     Dosage: (875MG/149MG), BID (1TAB)
     Route: 048
     Dates: start: 20250729, end: 20250801
  9. BRILINTA [Concomitant]
     Active Substance: TICAGRELOR
     Indication: Ischaemic stroke
     Dosage: 90 MG, BID (1TAB)
     Route: 048
     Dates: start: 20250729, end: 20250819
  10. LANSOPRAZOLE [Concomitant]
     Active Substance: LANSOPRAZOLE
     Indication: Stress
     Dosage: 30 MG (1 TAB)
     Route: 048
     Dates: start: 20250730, end: 20250823
  11. LANSOPRAZOLE [Concomitant]
     Active Substance: LANSOPRAZOLE
     Indication: Ulcer
  12. ASPIRIN [Concomitant]
     Active Substance: ASPIRIN
     Indication: Ischaemic stroke
     Dosage: 100 MG, QD (1 CAP)
     Route: 048
     Dates: start: 20250730, end: 20250823
  13. FEBUXOSTAT [Concomitant]
     Active Substance: FEBUXOSTAT
     Indication: Gouty arthritis
     Dosage: 80 MG, QD (0.5 TAB)
     Route: 048
     Dates: start: 20250729, end: 20250823
  14. REPAGLINIDE [Concomitant]
     Active Substance: REPAGLINIDE
     Indication: Diabetes mellitus
     Dosage: 1 MG (1 TAB)
     Route: 048
     Dates: start: 20250730, end: 20250818
  15. UNASYN [Concomitant]
     Active Substance: AMPICILLIN SODIUM\SULBACTAM SODIUM
     Indication: Infection
     Dosage: (1.06G M/0.5 3GM/ 0.55G M/0.2 7GM), Q6H
     Route: 042
     Dates: start: 20250801, end: 20250805

REACTIONS (4)
  - Acute kidney injury [Recovering/Resolving]
  - Anuria [Unknown]
  - Hypovolaemic shock [Unknown]
  - Renal haemorrhage [Unknown]

NARRATIVE: CASE EVENT DATE: 20250801
